FAERS Safety Report 9775906 (Version 3)
Quarter: 2014Q1

REPORT INFORMATION
  Report Type: Spontaneous
  Country: ID (occurrence: ID)
  Receive Date: 20131220
  Receipt Date: 20140211
  Transmission Date: 20141002
  Serious: Yes (Hospitalization, Other)
  Sender: FDA-Public Use
  Company Number: ID-GLAXOSMITHKLINE-B0954785A

PATIENT
  Age: 3 Year
  Sex: Female
  Weight: 21 kg

DRUGS (3)
  1. ZOVIRAX [Suspect]
     Indication: HERPES SIMPLEX ENCEPHALITIS
     Dosage: 250MG THREE TIMES PER DAY
     Route: 042
     Dates: start: 20131211, end: 20131219
  2. PARACETAMOL [Concomitant]
  3. ACYCLOVIR [Concomitant]

REACTIONS (4)
  - Instillation site vesicles [Recovering/Resolving]
  - Infusion site phlebitis [Recovered/Resolved]
  - Pyrexia [Recovered/Resolved]
  - Blister infected [Not Recovered/Not Resolved]
